FAERS Safety Report 12919439 (Version 1)
Quarter: 2016Q4

REPORT INFORMATION
  Report Type: Spontaneous
  Country: JP (occurrence: JP)
  Receive Date: 20161108
  Receipt Date: 20161108
  Transmission Date: 20170207
  Serious: Yes (Hospitalization, Other)
  Sender: FDA-Public Use
  Company Number: JP-ACCORD-045418

PATIENT
  Age: 52 Year
  Sex: Female

DRUGS (4)
  1. ETOPOSIDE. [Suspect]
     Active Substance: ETOPOSIDE
     Indication: OVARIAN CLEAR CELL CARCINOMA
     Dosage: ALSO RECEIVED FOR MULTIPLE LUNG METASTASES
     Route: 048
  2. WARFARIN [Concomitant]
     Active Substance: WARFARIN
  3. PREDNISOLONE. [Concomitant]
     Active Substance: PREDNISOLONE
     Indication: INTERSTITIAL LUNG DISEASE
  4. PACLITAXEL/PACLITAXEL LIPOSOME [Suspect]
     Active Substance: PACLITAXEL
     Indication: OVARIAN CLEAR CELL CARCINOMA
     Dosage: ALSO RECEIVED FOR MULTIPLE LUNG METASTASES

REACTIONS (6)
  - Malignant ascites [None]
  - Deep vein thrombosis [None]
  - Treatment failure [Unknown]
  - Anaphylactic reaction [None]
  - Interstitial lung disease [None]
  - Pulmonary embolism [None]
